FAERS Safety Report 12190431 (Version 1)
Quarter: 2016Q1

REPORT INFORMATION
  Report Type: Spontaneous
  Country: US (occurrence: US)
  Receive Date: 20160318
  Receipt Date: 20160318
  Transmission Date: 20160526
  Serious: No
  Sender: FDA-Public Use
  Company Number: US-BIOGEN-2011BI026320

PATIENT
  Sex: Female

DRUGS (2)
  1. TYSABRI [Suspect]
     Active Substance: NATALIZUMAB
     Indication: MULTIPLE SCLEROSIS
     Route: 042
     Dates: start: 20070213, end: 20130716
  2. TYSABRI [Suspect]
     Active Substance: NATALIZUMAB
     Dates: start: 20140909

REACTIONS (5)
  - Dyskinesia [Not Recovered/Not Resolved]
  - Muscle disorder [Not Recovered/Not Resolved]
  - Panic attack [Recovered/Resolved]
  - Anxiety [Not Recovered/Not Resolved]
  - Temperature intolerance [Not Recovered/Not Resolved]

NARRATIVE: CASE EVENT DATE: 2009
